FAERS Safety Report 14283743 (Version 1)
Quarter: 2017Q4

REPORT INFORMATION
  Report Type: Spontaneous
  Country: US (occurrence: US)
  Receive Date: 20171213
  Receipt Date: 20171213
  Transmission Date: 20180321
  Serious: Yes (Other)
  Sender: FDA-Public Use
  Company Number: None

PATIENT
  Age: 87 Year
  Sex: Female

DRUGS (1)
  1. EYLEA [Suspect]
     Active Substance: AFLIBERCEPT
     Indication: NEOVASCULAR AGE-RELATED MACULAR DEGENERATION
     Dosage: ?          OTHER FREQUENCY:EVERY 3 MONTHS;?
     Route: 047
     Dates: start: 20151006, end: 20171108

REACTIONS (4)
  - Metamorphopsia [None]
  - Vision blurred [None]
  - Lacrimation increased [None]
  - Injection site reaction [None]

NARRATIVE: CASE EVENT DATE: 20171213
